FAERS Safety Report 24343152 (Version 1)
Quarter: 2024Q3

REPORT INFORMATION
  Report Type: Spontaneous
  Country: US (occurrence: None)
  Receive Date: 20240920
  Receipt Date: 20240920
  Transmission Date: 20241016
  Serious: Yes (Hospitalization)
  Sender: Public
  Company Number: None

PATIENT
  Sex: Male
  Weight: 86 kg

DRUGS (1)
  1. CYTARABINE\DAUNORUBICIN [Suspect]
     Active Substance: CYTARABINE\DAUNORUBICIN

REACTIONS (10)
  - Anaemia [None]
  - Neutropenia [None]
  - Thrombocytopenia [None]
  - Platelet count decreased [None]
  - Vascular device infection [None]
  - Enterobacter test positive [None]
  - Seizure [None]
  - Pulse absent [None]
  - Coma [None]
  - Cardiac arrest [None]

NARRATIVE: CASE EVENT DATE: 20240919
